FAERS Safety Report 8172931 (Version 4)
Quarter: 2012Q4

REPORT INFORMATION
  Report Type: Report from Study
  Country: JP (occurrence: JP)
  Receive Date: 20111007
  Receipt Date: 20121114
  Transmission Date: 20130627
  Serious: Yes (Hospitalization, Other)
  Sender: FDA-Public Use
  Company Number: PHHY2009JP26404

PATIENT
  Age: 61 Year
  Sex: Female
  Weight: 154 kg

DRUGS (27)
  1. AMN107 [Suspect]
     Indication: CHRONIC MYELOID LEUKAEMIA
     Dosage: 400 mg, daily
     Route: 048
     Dates: start: 20090612, end: 20090714
  2. AMN107 [Suspect]
     Dosage: 600 mg, daily
     Route: 048
     Dates: start: 20090715, end: 20090721
  3. AMN107 [Suspect]
     Dosage: 800 mg, daily
     Route: 048
     Dates: start: 20090722, end: 20090923
  4. AMN107 [Suspect]
     Dosage: 600 mg, daily
     Route: 048
     Dates: start: 20090924, end: 20100702
  5. AMN107 [Suspect]
     Dosage: 400 mg, daily
     Route: 048
     Dates: start: 20100722, end: 20100727
  6. AMN107 [Suspect]
     Dosage: 200 mg, daily
     Route: 048
     Dates: start: 20100728
  7. AMN107 [Suspect]
     Dosage: 200 mg and 400 mg daily alternately
     Route: 048
     Dates: start: 20100811, end: 20101005
  8. AMN107 [Suspect]
     Dosage: 400 mg, daily
     Route: 048
     Dates: start: 20101006, end: 20111005
  9. AMN107 [Suspect]
     Dosage: 400 mg, daily
     Route: 048
     Dates: start: 20111012
  10. VOLTAREN [Concomitant]
     Dosage: UNK
     Dates: start: 20090704
  11. COLCHICINE [Concomitant]
     Dosage: UNK
     Route: 048
     Dates: start: 20090624, end: 20090630
  12. MOHRUS [Concomitant]
     Dosage: UNK
     Route: 062
     Dates: start: 20090630, end: 20090715
  13. CEFZON [Concomitant]
     Dosage: 200 mg, daily
     Route: 048
     Dates: start: 20090708, end: 20090729
  14. TAKEPRON [Concomitant]
     Indication: PROPHYLAXIS
     Dosage: 15 mg, daily
     Route: 048
     Dates: start: 20090704, end: 20090915
  15. TOPSYM [Concomitant]
     Dosage: UNK UKN, UNK
     Dates: start: 20090704
  16. FUCIDINE [Concomitant]
     Dosage: UNK UKN, UNK
     Dates: start: 20090711
  17. DIFLUCAN [Concomitant]
     Indication: PROPHYLAXIS
     Dosage: 100 mg, daily
     Route: 048
     Dates: start: 200901, end: 20090715
  18. BAKTAR [Concomitant]
     Indication: PROPHYLAXIS
     Dosage: 1 g, daily
     Route: 048
     Dates: start: 200901, end: 20100414
  19. URSO [Concomitant]
     Dosage: 200 mg, daily
     Route: 048
     Dates: start: 200901
  20. URSO [Concomitant]
     Dosage: 1 g, daily
     Route: 048
     Dates: start: 200901
  21. THYRADIN [Concomitant]
     Dosage: 50 ug, daily
     Route: 048
     Dates: start: 200901
  22. THYRADIN [Concomitant]
     Dosage: 200 mg, daily
     Route: 048
     Dates: start: 200901
  23. SELBEX [Concomitant]
     Indication: PROPHYLAXIS
     Dosage: 150 mg, daily
     Route: 048
     Dates: start: 20090526, end: 20090630
  24. LAC B [Concomitant]
     Dosage: 2 g, DAILY
     Route: 048
     Dates: start: 200901
  25. LOXONIN [Concomitant]
     Dosage: 180 mg, daily
     Route: 048
     Dates: start: 20090618, end: 20090916
  26. MYONAL [Concomitant]
     Dosage: 100 mg, daily
     Route: 048
     Dates: start: 20100701, end: 20100718
  27. FLOMOX [Concomitant]
     Indication: PROPHYLAXIS
     Dosage: 300 mg, daily
     Dates: start: 20100728, end: 20100802

REACTIONS (5)
  - Pneumonia [Recovering/Resolving]
  - Enterocolitis [Recovering/Resolving]
  - Pulmonary oedema [Recovering/Resolving]
  - Erythema nodosum [Recovering/Resolving]
  - Hypertension [Not Recovered/Not Resolved]
